FAERS Safety Report 7864514-4 (Version None)
Quarter: 2011Q4

REPORT INFORMATION
  Report Type: 
  Country: None (occurrence: None)
  Receive Date: 20111028
  Receipt Date: 20111025
  Transmission Date: 20120403
  Serious: No
  Sender: FDA-Public Use
  Company Number: US-PFIZER INC-2011256300

PATIENT
  Sex: Female
  Weight: 52.154 kg

DRUGS (3)
  1. IBUPROFEN (ADVIL) [Suspect]
     Indication: MUSCULOSKELETAL PAIN
     Dosage: 200 MG EVERY SIX HOURS AS NEEDED
     Route: 048
     Dates: start: 20110101, end: 20111001
  2. INSULIN [Concomitant]
     Indication: DIABETES MELLITUS
     Dosage: UNK
  3. IBUPROFEN (ADVIL) [Suspect]
     Indication: NECK PAIN
     Dosage: 200 MG, EVERY 6 HOURS
     Route: 048
     Dates: start: 20110101, end: 20111001

REACTIONS (2)
  - PAIN [None]
  - BLOOD GLUCOSE INCREASED [None]
